FAERS Safety Report 10753954 (Version 1)
Quarter: 2015Q1

REPORT INFORMATION
  Report Type: Spontaneous
  Country: US (occurrence: None)
  Receive Date: 20150129
  Receipt Date: 20150129
  Transmission Date: 20150721
  Serious: Yes (Other)
  Sender: FDA-Public Use
  Company Number: None

PATIENT
  Age: 50 Year
  Sex: Female
  Weight: 68.04 kg

DRUGS (1)
  1. BOTOX [Suspect]
     Active Substance: ONABOTULINUMTOXINA
     Indication: SKIN WRINKLING
     Dosage: INTO THE MUSCLE
     Route: 030

REACTIONS (5)
  - Transient ischaemic attack [None]
  - Eye swelling [None]
  - Swelling face [None]
  - Facial paresis [None]
  - Speech disorder [None]

NARRATIVE: CASE EVENT DATE: 20150128
